FAERS Safety Report 8369755-8 (Version None)
Quarter: 2012Q2

REPORT INFORMATION
  Report Type: 
  Country: None (occurrence: None)
  Receive Date: 20120518
  Receipt Date: 20120514
  Transmission Date: 20120825
  Serious: Yes (Life-Threatening, Hospitalization)
  Sender: FDA-Public Use
  Company Number: PHHO2011DE02120

PATIENT
  Sex: Male
  Weight: 93 kg

DRUGS (15)
  1. ENALAPRIL MALEATE [Suspect]
     Indication: CARDIAC FAILURE
     Dosage: 10 MG, BID
     Route: 048
     Dates: start: 20091207, end: 20100105
  2. MARCUMAR [Concomitant]
  3. BLINDED ALISKIREN [Suspect]
     Indication: CARDIAC FAILURE
     Dosage: CODE NOT BROKEN
     Route: 048
     Dates: start: 20100128
  4. EZETIMIBE [Concomitant]
  5. INSPRA [Concomitant]
  6. ASPIRIN [Concomitant]
  7. RAMIPRIL [Concomitant]
  8. CARVEDILOL [Suspect]
  9. BISOPROLOL FUMARATE [Concomitant]
  10. BLINDED NO TREATMENT RECEIVED [Suspect]
     Indication: CARDIAC FAILURE
     Dosage: CODE NOT BROKEN
     Route: 048
     Dates: start: 20100128
  11. LASIX [Concomitant]
  12. METFORMIN HCL [Concomitant]
  13. ENALAPRIL MALEATE [Suspect]
     Indication: CARDIAC FAILURE
     Dosage: CODE NOT BROKEN
     Route: 048
     Dates: start: 20100128
  14. ALISKIREN [Suspect]
     Indication: CARDIAC FAILURE
     Dosage: 10 MG, BID
     Route: 048
     Dates: start: 20100106, end: 20100127
  15. EFFIENT [Concomitant]

REACTIONS (5)
  - CARDIAC FAILURE [None]
  - DIZZINESS [None]
  - PRESYNCOPE [None]
  - INFLUENZA LIKE ILLNESS [None]
  - MYOCARDIAL INFARCTION [None]
